FAERS Safety Report 4354340-5 (Version None)
Quarter: 2004Q2

REPORT INFORMATION
  Report Type: 
  Country: None (occurrence: None)
  Receive Date: 20040503
  Receipt Date: 20040123
  Transmission Date: 20050107
  Serious: Yes (Other)
  Sender: FDA-Public Use
  Company Number: PHEH2004US00565

PATIENT
  Age: 56 Year
  Sex: Female

DRUGS (4)
  1. DIOVAN HCT [Suspect]
     Indication: HYPERTENSION
     Dosage: 160MG VAL+25MG HCT,QD,ORAL
     Route: 048
  2. ATENOLOL [Concomitant]
  3. DAILY VITAMINS (VITAMINS NOS) [Concomitant]
  4. IBUPROFEN [Concomitant]

REACTIONS (2)
  - DEPRESSION [None]
  - HEART RATE DECREASED [None]
